FAERS Safety Report 6627054-6 (Version None)
Quarter: 2010Q1

REPORT INFORMATION
  Report Type: 
  Country: None (occurrence: None)
  Receive Date: 20100311
  Receipt Date: 20090615
  Transmission Date: 20100710
  Serious: No
  Sender: FDA-Public Use
  Company Number: A0791533A

PATIENT
  Age: 73 Year
  Sex: Male

DRUGS (1)
  1. NICORETTE (MINT) [Suspect]

REACTIONS (2)
  - DRUG ADMINISTRATION ERROR [None]
  - SPEECH DISORDER [None]
